FAERS Safety Report 6851445-1 (Version None)
Quarter: 2010Q3

REPORT INFORMATION
  Report Type: 
  Country: None (occurrence: None)
  Receive Date: 20100717
  Receipt Date: 20080321
  Transmission Date: 20110219
  Serious: No
  Sender: FDA-Public Use
  Company Number: US-PFIZER INC-2008006583

PATIENT

DRUGS (1)
  1. CHANTIX [Suspect]
     Dates: start: 20071001

REACTIONS (2)
  - ADVERSE DRUG REACTION [None]
  - URINE ODOUR ABNORMAL [None]
